FAERS Safety Report 7351115-X (Version None)
Quarter: 2011Q1

REPORT INFORMATION
  Report Type: 
  Country: None (occurrence: None)
  Receive Date: 20110304
  Receipt Date: 20110221
  Transmission Date: 20110831
  Serious: Yes (Death)
  Sender: FDA-Public Use
  Company Number: UTC-005340

PATIENT
  Age: 69 Year
  Sex: Female
  Weight: 65.9 kg

DRUGS (5)
  1. DIURETICS [Concomitant]
  2. REMODULIN [Suspect]
     Dosage: 57.6 UG/KG (0.04 UG/KG, 1 IN 1 MIN), INTRAVENOS
     Route: 042
  3. DIURETICS (DIURETICS) [Concomitant]
  4. REVATIO (SILFENAFIL CITRATE) [Concomitant]
  5. REVATIO [Concomitant]

REACTIONS (1)
  - DEATH [None]
